FAERS Safety Report 15561510 (Version 2)
Quarter: 2019Q1

REPORT INFORMATION
  Report Type: Spontaneous
  Country: GB (occurrence: GB)
  Receive Date: 20181029
  Receipt Date: 20190128
  Transmission Date: 20190417
  Serious: Yes (Other)
  Sender: FDA-Public Use
  Company Number: GB-PFIZER INC-2018435184

PATIENT
  Age: 56 Year
  Sex: Male
  Weight: 83 kg

DRUGS (2)
  1. LOSARTAN. [Concomitant]
     Active Substance: LOSARTAN
     Dosage: 50 MG, DAILY
  2. AMLODIPINE BESILATE [Suspect]
     Active Substance: AMLODIPINE BESYLATE
     Indication: ESSENTIAL HYPERTENSION
     Dosage: 5 MG, DAILY
     Route: 048
     Dates: start: 20180907, end: 20180911

REACTIONS (2)
  - Tinnitus [Recovered/Resolved with Sequelae]
  - Deafness [Recovered/Resolved with Sequelae]

NARRATIVE: CASE EVENT DATE: 20180908
